FAERS Safety Report 10720720 (Version 1)
Quarter: 2015Q1

REPORT INFORMATION
  Report Type: Spontaneous
  Country: US (occurrence: US)
  Receive Date: 20150119
  Receipt Date: 20150119
  Transmission Date: 20150721
  Serious: No
  Sender: FDA-Public Use
  Company Number: US-BRACCO-007665

PATIENT
  Age: 54 Year
  Sex: Female

DRUGS (9)
  1. AMLODIPIN [Concomitant]
     Active Substance: AMLODIPINE BESYLATE
  2. ASPIRIN. [Concomitant]
     Active Substance: ASPIRIN
  3. LOTEMAX [Concomitant]
     Active Substance: LOTEPREDNOL ETABONATE
     Dates: end: 2012
  4. SINOGRAFIN [Suspect]
     Active Substance: DIATRIZOATE MEGLUMINE\IODIPAMIDE MEGLUMINE
     Indication: DACRYOSTENOSIS ACQUIRED
     Dosage: 4 ML EACH SIDE
     Dates: start: 20120217, end: 20120217
  5. FISH OIL [Concomitant]
     Active Substance: FISH OIL
  6. LOSARTAN [Concomitant]
     Active Substance: LOSARTAN
  7. VITAMIN D [Concomitant]
     Active Substance: CHOLECALCIFEROL
     Dosage: 1000 UNITS
  8. KLOR-CON [Concomitant]
     Active Substance: POTASSIUM CHLORIDE
  9. SINOGRAFIN [Suspect]
     Active Substance: DIATRIZOATE MEGLUMINE\IODIPAMIDE MEGLUMINE
     Indication: FACE AND MOUTH X-RAY
     Dosage: 4 ML EACH SIDE
     Dates: start: 20120217, end: 20120217

REACTIONS (3)
  - Ocular hyperaemia [Unknown]
  - Lacrimation increased [Unknown]
  - Eye irritation [Unknown]

NARRATIVE: CASE EVENT DATE: 20120217
